FAERS Safety Report 14451852 (Version 1)
Quarter: 2018Q1

REPORT INFORMATION
  Report Type: Spontaneous
  Country: US (occurrence: US)
  Receive Date: 20180129
  Receipt Date: 20180129
  Transmission Date: 20180509
  Serious: No
  Sender: FDA-Public Use
  Company Number: US-ABBVIE-17K-163-2162599-00

PATIENT

DRUGS (1)
  1. HUMIRA [Suspect]
     Active Substance: ADALIMUMAB
     Indication: RHEUMATOID ARTHRITIS
     Route: 058

REACTIONS (7)
  - Fatigue [Unknown]
  - Pain in extremity [Unknown]
  - Emotional distress [Unknown]
  - Stress [Unknown]
  - General physical health deterioration [Unknown]
  - Inflammation [Recovering/Resolving]
  - Back pain [Unknown]
